FAERS Safety Report 17351646 (Version 1)
Quarter: 2020Q1

REPORT INFORMATION
  Report Type: Report from Study
  Country: CO (occurrence: CO)
  Receive Date: 20200130
  Receipt Date: 20200130
  Transmission Date: 20200409
  Serious: Yes (Death)
  Sender: FDA-Public Use
  Company Number: CO-ACTELION-A-NJ2020-201231

PATIENT
  Age: 32 Year
  Sex: Female

DRUGS (1)
  1. VENTAVIS [Suspect]
     Active Substance: ILOPROST
     Indication: PULMONARY ARTERIAL HYPERTENSION
     Dosage: 2.5 MCG
     Route: 055
     Dates: start: 20190923, end: 20191112

REACTIONS (1)
  - Death [Fatal]

NARRATIVE: CASE EVENT DATE: 20200124
